FAERS Safety Report 14471930 (Version 1)
Quarter: 2018Q1

REPORT INFORMATION
  Report Type: Spontaneous
  Country: GB (occurrence: GB)
  Receive Date: 20180131
  Receipt Date: 20180131
  Transmission Date: 20180509
  Serious: Yes (Hospitalization)
  Sender: FDA-Public Use
  Company Number: GB-MISSION PHARMACAL COMPANY-2041180

PATIENT
  Age: 92 Year
  Sex: Female

DRUGS (14)
  1. BINOSTO [Suspect]
     Active Substance: ALENDRONATE SODIUM
     Indication: HIP FRACTURE
     Route: 048
  2. NUTRATIONAL SUPPLEMENT [Concomitant]
     Route: 065
  3. ONDANSETRON [Concomitant]
     Active Substance: ONDANSETRON
     Route: 065
  4. ADCAL-D3 [Concomitant]
     Active Substance: CALCIUM CARBONATE\CHOLECALCIFEROL
     Route: 065
  5. NITROFURANTOIN. [Concomitant]
     Active Substance: NITROFURANTOIN
     Route: 065
  6. CARBOMER [Concomitant]
     Active Substance: CARBOMER
     Route: 065
  7. OMEPRAZOLE. [Concomitant]
     Active Substance: OMEPRAZOLE
     Route: 065
  8. PARACETAMOL [Concomitant]
     Active Substance: ACETAMINOPHEN
     Route: 065
  9. CLOPIDOGREL [Concomitant]
     Active Substance: CLOPIDOGREL BISULFATE
     Route: 065
  10. PROCHLORPERAZINE. [Concomitant]
     Active Substance: PROCHLORPERAZINE
     Route: 065
  11. GLYCERYL TRINITRATE [Concomitant]
     Active Substance: NITROGLYCERIN
     Route: 065
  12. MOVICOL [Concomitant]
     Active Substance: POLYETHYLENE GLYCOL 3350\POTASSIUM CHLORIDE\SODIUM BICARBONATE\SODIUM CHLORIDE
     Route: 065
  13. ALGINATES [Concomitant]
     Route: 065
  14. LORAZEPAM. [Concomitant]
     Active Substance: LORAZEPAM
     Route: 065

REACTIONS (6)
  - Oesophagitis [Unknown]
  - Malaise [Unknown]
  - Pyrexia [Unknown]
  - Tracheo-oesophageal fistula [Unknown]
  - Dysphagia [Unknown]
  - Abdominal pain [Unknown]
